FAERS Safety Report 6657184-4 (Version None)
Quarter: 2010Q1

REPORT INFORMATION
  Report Type: 
  Country: None (occurrence: None)
  Receive Date: 20100330
  Receipt Date: 20100322
  Transmission Date: 20100710
  Serious: Yes (Hospitalization)
  Sender: FDA-Public Use
  Company Number: AU-ASTRAZENECA-2010SE12798

PATIENT
  Age: 64 Year
  Sex: Female

DRUGS (2)
  1. ACIMAX [Suspect]
     Indication: BARRETT'S OESOPHAGUS
     Route: 048
  2. ACTONEL [Suspect]
     Route: 048
     Dates: start: 20070201, end: 20090901

REACTIONS (1)
  - FEMUR FRACTURE [None]
